FAERS Safety Report 4269674-2 (Version None)
Quarter: 2004Q1

REPORT INFORMATION
  Report Type: 
  Country: None (occurrence: None)
  Receive Date: 20040112
  Receipt Date: 20040106
  Transmission Date: 20041129
  Serious: Yes (Death)
  Sender: FDA-Public Use
  Company Number: KII-2003-0003493

PATIENT
  Age: 70 Year
  Sex: Female

DRUGS (5)
  1. OXYCONTIN [Suspect]
     Indication: PAIN
     Dosage: 200 MG, BID
  2. CELEBREX [Concomitant]
  3. CELEXA [Concomitant]
  4. SKELAXIN [Concomitant]
  5. PRINIVIL [Concomitant]

REACTIONS (3)
  - IMMOBILE [None]
  - OSTEOARTHRITIS [None]
  - PULMONARY EMBOLISM [None]
